FAERS Safety Report 14790448 (Version 1)
Quarter: 2018Q2

REPORT INFORMATION
  Report Type: Report from Study
  Country: AU (occurrence: AU)
  Receive Date: 20180423
  Receipt Date: 20180423
  Transmission Date: 20180711
  Serious: Yes (Hospitalization, Other)
  Sender: FDA-Public Use
  Company Number: AU-MYLANLABS-2017M1043472

PATIENT
  Age: 56 Year
  Sex: Male
  Weight: 180 kg

DRUGS (2)
  1. CLOZARIL [Suspect]
     Active Substance: CLOZAPINE
     Dosage: UNK
     Route: 048
  2. CLOZARIL [Suspect]
     Active Substance: CLOZAPINE
     Indication: SCHIZOPHRENIA
     Dosage: 300 MG
     Route: 048
     Dates: start: 20051213, end: 2014

REACTIONS (11)
  - Obesity [Unknown]
  - Pneumonia [Recovering/Resolving]
  - Neutropenia [Unknown]
  - Schizophrenia [Unknown]
  - Neutrophil count increased [Recovered/Resolved]
  - Therapy cessation [Unknown]
  - Intestinal obstruction [Unknown]
  - Sleep apnoea syndrome [Unknown]
  - White blood cell count increased [Recovered/Resolved]
  - Red blood cell count decreased [Unknown]
  - Ill-defined disorder [Unknown]

NARRATIVE: CASE EVENT DATE: 20070608
